FAERS Safety Report 17490591 (Version 1)
Quarter: 2020Q1

REPORT INFORMATION
  Report Type: Spontaneous
  Country: US (occurrence: US)
  Receive Date: 20200303
  Receipt Date: 20200303
  Transmission Date: 20200409
  Serious: No
  Sender: FDA-Public Use
  Company Number: US-AKORN PHARMACEUTICALS-2019AKN00679

PATIENT
  Age: 46 Year
  Sex: Female
  Weight: 56.69 kg

DRUGS (9)
  1. MYORISAN [Suspect]
     Active Substance: ISOTRETINOIN
     Indication: ACNE
     Dosage: UNK
     Dates: start: 20181201, end: 2019
  2. MYORISAN [Suspect]
     Active Substance: ISOTRETINOIN
     Dosage: 60 MG, EVERY 48 HOURS (ALTERNATING WITH 30 MG EVER OTHER DAY)
     Dates: start: 201903, end: 20190328
  3. CLARAVIS [Suspect]
     Active Substance: ISOTRETINOIN
     Indication: ACNE
     Dosage: UNK
     Dates: start: 20190123, end: 2019
  4. TRAMADOL. [Concomitant]
     Active Substance: TRAMADOL
     Dosage: 50-100 MG, AS NEEDED
     Route: 048
  5. MYORISAN [Suspect]
     Active Substance: ISOTRETINOIN
     Indication: ACNE
     Dosage: UNK
     Dates: start: 20181201, end: 2019
  6. MYORISAN [Suspect]
     Active Substance: ISOTRETINOIN
     Indication: ACNE
     Dosage: UNK
     Dates: start: 20181221, end: 201903
  7. MYORISAN [Suspect]
     Active Substance: ISOTRETINOIN
     Dosage: 30 MG, EVERY 48 HOURS (ALTERNATING WITH 60 MG EVER OTHER DAY)
     Dates: start: 201903, end: 20190328
  8. TRAMADOL. [Concomitant]
     Active Substance: TRAMADOL
     Dosage: 100 MG, AS NEEDED
     Route: 048
  9. MULTIVITAMIN [Concomitant]
     Active Substance: VITAMINS

REACTIONS (4)
  - Gait disturbance [Recovering/Resolving]
  - Movement disorder [Recovering/Resolving]
  - Musculoskeletal stiffness [Recovering/Resolving]
  - Arthralgia [Recovering/Resolving]

NARRATIVE: CASE EVENT DATE: 201903
